FAERS Safety Report 6207529-4 (Version None)
Quarter: 2009Q2

REPORT INFORMATION
  Report Type: 
  Country: None (occurrence: None)
  Receive Date: 20090526
  Receipt Date: 20090514
  Transmission Date: 20091009
  Serious: Yes (Hospitalization)
  Sender: FDA-Public Use
  Company Number: 000847

PATIENT
  Age: 38 Year
  Sex: Male

DRUGS (5)
  1. VIMPAT [Suspect]
     Dosage: (300 MG, 300 MG DAILY)
  2. OMEPRAZOLE [Suspect]
  3. VALPROIC ACID [Suspect]
  4. LAMOTRIGINE [Suspect]
  5. PREGABALIN        (PREGABALIN) [Suspect]

REACTIONS (3)
  - NAUSEA [None]
  - RASH [None]
  - URTICARIA [None]
